FAERS Safety Report 13710349 (Version 1)
Quarter: 2017Q3

REPORT INFORMATION
  Report Type: Spontaneous
  Country: US (occurrence: US)
  Receive Date: 20170703
  Receipt Date: 20170703
  Transmission Date: 20171127
  Serious: Yes (Other)
  Sender: FDA-Public Use
  Company Number: US-AMGEN-USASP2017097977

PATIENT
  Age: 91 Year
  Sex: Male

DRUGS (1)
  1. SENSIPAR [Suspect]
     Active Substance: CINACALCET HYDROCHLORIDE
     Indication: HYPERPARATHYROIDISM
     Dosage: 30 MG, QD
     Route: 065
     Dates: start: 2015

REACTIONS (4)
  - Squamous cell carcinoma [Unknown]
  - Hyperkeratosis [Unknown]
  - Basal cell carcinoma [Unknown]
  - Arteriovenous fistula site complication [Unknown]
